FAERS Safety Report 11720728 (Version 1)
Quarter: 2015Q4

REPORT INFORMATION
  Report Type: Report from Study
  Country: CA (occurrence: CA)
  Receive Date: 20151110
  Receipt Date: 20151110
  Transmission Date: 20160304
  Serious: Yes (Other)
  Sender: FDA-Public Use
  Company Number: CA-JNJFOC-20151009461

PATIENT
  Sex: Male
  Weight: 73 kg

DRUGS (1)
  1. SIMPONI [Suspect]
     Active Substance: GOLIMUMAB
     Indication: COLITIS ULCERATIVE
     Route: 058
     Dates: start: 20150728

REACTIONS (3)
  - Frequent bowel movements [Not Recovered/Not Resolved]
  - Rash [Unknown]
  - Pyoderma [Not Recovered/Not Resolved]

NARRATIVE: CASE EVENT DATE: 2015
